FAERS Safety Report 4327655-4 (Version None)
Quarter: 2004Q1

REPORT INFORMATION
  Report Type: 
  Country: None (occurrence: None)
  Receive Date: 20040325
  Receipt Date: 20040317
  Transmission Date: 20041129
  Serious: Yes (Other)
  Sender: FDA-Public Use
  Company Number: HQWYE953518MAR04

PATIENT
  Sex: Female

DRUGS (1)
  1. EFFEXOR [Suspect]
     Dosage: UNKNOWN INITIAL DOSE UP TO 225 MG, ORAL
     Route: 048
     Dates: start: 20000314, end: 20031201

REACTIONS (4)
  - ABNORMAL BEHAVIOUR [None]
  - FEELING ABNORMAL [None]
  - LOSS OF EMPLOYMENT [None]
  - SELF ESTEEM DECREASED [None]
